FAERS Safety Report 4830726-7 (Version None)
Quarter: 2005Q4

REPORT INFORMATION
  Report Type: 
  Country: None (occurrence: None)
  Receive Date: 20051114
  Receipt Date: 20051104
  Transmission Date: 20060501
  Serious: Yes (Hospitalization)
  Sender: FDA-Public Use
  Company Number: FRWYE116104NOV05

PATIENT
  Age: 45 Year
  Sex: Female

DRUGS (2)
  1. TAZOCILLINE (PIPERACILLIN/TAZOBACTAM, INJECTION) [Suspect]
     Dosage: SEE IMAGE
     Route: 042
     Dates: end: 20051014
  2. TAZOCILLINE (PIPERACILLIN/TAZOBACTAM, INJECTION) [Suspect]
     Dosage: SEE IMAGE
     Route: 042
     Dates: start: 20051020, end: 20051020

REACTIONS (3)
  - CONVULSION [None]
  - CREATININE RENAL CLEARANCE DECREASED [None]
  - DRUG LEVEL ABOVE THERAPEUTIC [None]
